FAERS Safety Report 6253795-9 (Version None)
Quarter: 2009Q3

REPORT INFORMATION
  Report Type: 
  Country: None (occurrence: None)
  Receive Date: 20090702
  Receipt Date: 20090619
  Transmission Date: 20100115
  Serious: Yes (Other)
  Sender: FDA-Public Use
  Company Number: ES-JNJCH-2009017703

PATIENT
  Sex: Male

DRUGS (1)
  1. LISTERINE TOTAL CARE [Suspect]
     Indication: DENTAL DISORDER PROPHYLAXIS
     Dosage: TEXT:UNSPECIFIED TWICE A DAY
     Route: 048

REACTIONS (2)
  - APPLICATION SITE BURN [None]
  - INCORRECT ROUTE OF DRUG ADMINISTRATION [None]
